FAERS Safety Report 9879672 (Version 1)
Quarter: 2014Q1

REPORT INFORMATION
  Report Type: Spontaneous
  Country: US (occurrence: US)
  Receive Date: 20140206
  Receipt Date: 20140206
  Transmission Date: 20141002
  Serious: Yes (Other)
  Sender: FDA-Public Use
  Company Number: US-RB-063076-14

PATIENT
  Age: 28 Year
  Sex: Female
  Weight: 57 kg

DRUGS (6)
  1. SUBOXONE FILM [Suspect]
     Indication: DRUG DEPENDENCE
     Dosage: SUBOXONE FILM: 1 IN THE MORNING AND HALF IN THE EVENING
     Route: 060
     Dates: start: 20080829
  2. ELAVIL [Concomitant]
     Indication: ENDOMETRIOSIS
     Route: 065
  3. ELAVIL [Concomitant]
     Indication: PAIN
     Route: 065
  4. PRENATAL CARE SUPPLEMENTS [Concomitant]
     Indication: VITAMIN SUPPLEMENTATION
     Dosage: DOSING DETAILS UNKNOWN
     Route: 065
  5. NICOTINE [Concomitant]
     Indication: PRODUCT USED FOR UNKNOWN INDICATION
     Dosage: DOSING DETAILS UNKNOWN: STOPPED DURING FIRST TRIMESTER
     Route: 055
     Dates: end: 2013
  6. TEA NATURAL [Concomitant]
     Indication: PRODUCT USED FOR UNKNOWN INDICATION
     Dosage: DOSING DETAILS UNKNOWN
     Route: 065

REACTIONS (4)
  - Abortion spontaneous [Recovered/Resolved]
  - Wrong technique in drug usage process [Not Recovered/Not Resolved]
  - Drug abuse [Recovered/Resolved]
  - Maternal exposure during pregnancy [Recovered/Resolved]
